FAERS Safety Report 8396485-9 (Version None)
Quarter: 2012Q2

REPORT INFORMATION
  Report Type: 
  Country: None (occurrence: None)
  Receive Date: 20120530
  Receipt Date: 20120524
  Transmission Date: 20120825
  Serious: Yes (Other)
  Sender: FDA-Public Use
  Company Number: BR-PFIZER INC-2012083816

PATIENT
  Age: 28 Year
  Sex: Female
  Weight: 43 kg

DRUGS (1)
  1. PROVERA [Suspect]
     Indication: AMENORRHOEA
     Dosage: 10 MG, 2X/DAY (EVERY 12 HOURS) FOR 5 DAYS
     Route: 048
     Dates: start: 20120201, end: 20120301

REACTIONS (5)
  - MENSTRUATION IRREGULAR [None]
  - UTERINE INFECTION [None]
  - VAGINAL DISCHARGE [None]
  - DRUG INEFFECTIVE [None]
  - BREAST PAIN [None]
